FAERS Safety Report 4271261-7 (Version None)
Quarter: 2004Q1

REPORT INFORMATION
  Report Type: 
  Country: None (occurrence: None)
  Receive Date: 20040114
  Receipt Date: 20040114
  Transmission Date: 20041129
  Serious: Yes (Hospitalization)
  Sender: FDA-Public Use
  Company Number: None

PATIENT
  Age: 78 Year
  Sex: Female
  Weight: 91 kg

DRUGS (7)
  1. COUMADIN [Suspect]
     Indication: ATRIAL FIBRILLATION
     Dosage: 5 MG PO Q 5 PM 7.5 MG PO Q 5PM
     Route: 048
     Dates: start: 20031203, end: 20031205
  2. HEPARIN [Concomitant]
  3. ISORDIL [Concomitant]
  4. DILANTIN [Concomitant]
  5. PREVACID [Concomitant]
  6. LOPRESSOR [Concomitant]
  7. LISPRO INSULIN [Concomitant]

REACTIONS (1)
  - INTERNATIONAL NORMALISED RATIO INCREASED [None]
